FAERS Safety Report 13923524 (Version 1)
Quarter: 2017Q3

REPORT INFORMATION
  Report Type: Spontaneous
  Country: US (occurrence: US)
  Receive Date: 20170830
  Receipt Date: 20170830
  Transmission Date: 20171127
  Serious: Yes (Disabling)
  Sender: FDA-Public Use
  Company Number: None

PATIENT
  Age: 38 Year
  Weight: 180 kg

DRUGS (7)
  1. BIPAP [Concomitant]
     Active Substance: DEVICE
  2. LOSARTAN/HCTZ [Concomitant]
     Active Substance: HYDROCHLOROTHIAZIDE\LOSARTAN
  3. DIVLAPROEX [Suspect]
     Active Substance: DIVALPROEX SODIUM
     Indication: ANXIETY
     Dosage: ?          QUANTITY:1 TABLET(S);?
     Route: 048
     Dates: start: 20170425, end: 20170828
  4. GENERIC NASAL SPRAY [Concomitant]
     Active Substance: UNSPECIFIED INGREDIENT
  5. STOOL SOFTENER (DOCUSATE) [Concomitant]
     Active Substance: DOCUSATE
  6. ZOLOFT GENERIC [Concomitant]
     Active Substance: SERTRALINE HYDROCHLORIDE
  7. CPAP [Concomitant]
     Active Substance: DEVICE

REACTIONS (3)
  - Product use in unapproved indication [None]
  - Spermatozoa abnormal [None]
  - Incorrect dose administered [None]

NARRATIVE: CASE EVENT DATE: 20170425
